FAERS Safety Report 6457390-8 (Version None)
Quarter: 2009Q4

REPORT INFORMATION
  Report Type: 
  Country: None (occurrence: None)
  Receive Date: 20091125
  Receipt Date: 20091117
  Transmission Date: 20100525
  Serious: Yes (Hospitalization)
  Sender: FDA-Public Use
  Company Number: DE-MERCK-0911USA04220

PATIENT
  Age: 90 Year
  Sex: Female

DRUGS (6)
  1. PRINIVIL [Suspect]
     Indication: HYPERTENSION
     Route: 048
     Dates: start: 20070501, end: 20090525
  2. XIPAMIDE [Suspect]
     Indication: HYPERTENSION
     Route: 048
  3. GLIMEPIRIDE [Concomitant]
     Route: 065
     Dates: end: 20090525
  4. OMEPRAZOLE [Concomitant]
     Route: 065
     Dates: start: 20070501
  5. TORSEMIDE [Suspect]
     Indication: HYPERTENSION
     Route: 048
     Dates: start: 20070501, end: 20090525
  6. BISOPROLOL FUMARATE AND HYDROCHLOROTHIAZIDE [Suspect]
     Indication: HYPERTENSION
     Route: 048
     Dates: start: 20070501, end: 20090525

REACTIONS (5)
  - ACUTE PRERENAL FAILURE [None]
  - ASTHENIA [None]
  - DRUG INTERACTION [None]
  - NAUSEA [None]
  - VOMITING [None]
